FAERS Safety Report 5593372-6 (Version None)
Quarter: 2008Q1

REPORT INFORMATION
  Report Type: 
  Country: None (occurrence: None)
  Receive Date: 20080114
  Receipt Date: 20061010
  Transmission Date: 20080703
  Serious: Yes (Other)
  Sender: FDA-Public Use
  Company Number: 2006VX001793

PATIENT
  Age: 86 Year
  Sex: Female

DRUGS (7)
  1. PROSTIGMIN BROMIDE [Suspect]
     Dosage: 2.50 MG
  2. EPHEDRINE HCL 1PC SOL [Suspect]
     Dosage: 10 MG
  3. FORANE [Suspect]
     Dosage: IV
     Route: 042
  4. ATROPINE [Suspect]
     Dosage: 1.2 MG
  5. HYDROCHLOROTHIAZIDE [Concomitant]
  6. DIGOXIN [Concomitant]
  7. SLOW-K [Concomitant]

REACTIONS (3)
  - ARRHYTHMIA [None]
  - ATRIAL FIBRILLATION [None]
  - ATRIOVENTRICULAR BLOCK [None]
